FAERS Safety Report 20596715 (Version 3)
Quarter: 2022Q4

REPORT INFORMATION
  Report Type: Report from Study
  Country: PA (occurrence: PA)
  Receive Date: 20220315
  Receipt Date: 20221022
  Transmission Date: 20230112
  Serious: Yes (Life-Threatening, Other)
  Sender: FDA-Public Use
  Company Number: PA-NOVARTISPH-NVSC2020PA296168

PATIENT
  Age: 34 Year
  Sex: Female
  Weight: 88 kg

DRUGS (4)
  1. SECUKINUMAB [Suspect]
     Active Substance: SECUKINUMAB
     Indication: Psoriasis
     Dosage: 300 MG, QMO (BENEATH THE SKIN, USUALLY VIA INJECTION)
     Route: 058
     Dates: start: 20200807, end: 20211201
  2. SECUKINUMAB [Suspect]
     Active Substance: SECUKINUMAB
     Indication: Psoriatic arthropathy
  3. METHOTREXATE [Concomitant]
     Active Substance: METHOTREXATE
     Indication: Psoriasis
     Dosage: 2.5 MG, 2 TABLETS EVERY MONDAY IN THE MORNING AND IN THE AFTERNOON, AND ON TUESDAY IN THE MORNING
     Route: 048
  4. METHOTREXATE [Concomitant]
     Active Substance: METHOTREXATE
     Dosage: 3 DF
     Route: 048
     Dates: start: 202101

REACTIONS (19)
  - Psoriasis [Not Recovered/Not Resolved]
  - Condition aggravated [Unknown]
  - Burning sensation [Unknown]
  - Pain [Unknown]
  - Stress [Recovering/Resolving]
  - Malaise [Recovering/Resolving]
  - Nausea [Recovering/Resolving]
  - Vomiting [Recovering/Resolving]
  - Insomnia [Recovering/Resolving]
  - Musculoskeletal stiffness [Recovering/Resolving]
  - Arthritis [Unknown]
  - Arthralgia [Unknown]
  - Erythema [Not Recovered/Not Resolved]
  - Gait inability [Unknown]
  - Skin plaque [Unknown]
  - Skin disorder [Unknown]
  - Injury [Unknown]
  - Skin haemorrhage [Unknown]
  - Product availability issue [Unknown]

NARRATIVE: CASE EVENT DATE: 20210318
